FAERS Safety Report 16660498 (Version 1)
Quarter: 2019Q3

REPORT INFORMATION
  Report Type: Spontaneous
  Country: US (occurrence: US)
  Receive Date: 20190619
  Receipt Date: 20190619
  Transmission Date: 20191004
  Serious: No
  Sender: FDA-Public Use
  Company Number: None

PATIENT
  Sex: Female

DRUGS (1)
  1. VITAMIN D [Suspect]
     Active Substance: VITAMIN D NOS

REACTIONS (3)
  - Product dispensing error [None]
  - Hypervitaminosis [None]
  - Inappropriate schedule of product administration [None]
